FAERS Safety Report 4317187-1 (Version None)
Quarter: 2004Q1

REPORT INFORMATION
  Report Type: 
  Country: None (occurrence: None)
  Receive Date: 20040312
  Receipt Date: 20040224
  Transmission Date: 20041129
  Serious: Yes (Hospitalization)
  Sender: FDA-Public Use
  Company Number: 193191

PATIENT
  Age: 45 Year
  Sex: Female
  Weight: 39.9165 kg

DRUGS (3)
  1. AVONEX [Suspect]
     Indication: MULTIPLE SCLEROSIS
     Dosage: 30 MCG QW IM
     Route: 030
     Dates: start: 19990101, end: 20031001
  2. AVONEX [Suspect]
     Indication: MULTIPLE SCLEROSIS
     Dosage: 30 MCG QW IM
     Route: 030
     Dates: start: 20031001
  3. CENTRUM [Concomitant]

REACTIONS (5)
  - ASTHENIA [None]
  - FULL BLOOD COUNT DECREASED [None]
  - NAUSEA [None]
  - OSTEOPOROSIS [None]
  - WEIGHT DECREASED [None]
